FAERS Safety Report 23565168 (Version 4)
Quarter: 2024Q1

REPORT INFORMATION
  Report Type: Spontaneous
  Country: US (occurrence: US)
  Receive Date: 20240226
  Receipt Date: 20240320
  Transmission Date: 20240410
  Serious: No
  Sender: FDA-Public Use
  Company Number: US-PFIZER INC-PV202200034051

PATIENT
  Age: 80 Year
  Sex: Female
  Weight: 55.601 kg

DRUGS (1)
  1. IBRANCE [Suspect]
     Active Substance: PALBOCICLIB
     Dosage: 1 TABLET BY ORAL ROUTE EVERY DAY FOR 21 CONSECUTIVE DAYS, FOLLOWED BY 14 DAYS OFF
     Route: 048

REACTIONS (3)
  - Hyperventilation [Unknown]
  - Off label use [Unknown]
  - Product use issue [Unknown]
